FAERS Safety Report 18807905 (Version 2)
Quarter: 2021Q1

REPORT INFORMATION
  Report Type: Report from Study
  Country: None (occurrence: US)
  Receive Date: 20210129
  Receipt Date: 20210211
  Transmission Date: 20210419
  Serious: Yes (Hospitalization, Other)
  Sender: FDA-Public Use
  Company Number: US-ABBVIE-20K-163-3575762-00

PATIENT
  Sex: Female

DRUGS (3)
  1. HUMIRA [Suspect]
     Active Substance: ADALIMUMAB
     Indication: PSORIASIS
     Dosage: DAY 1
     Route: 058
     Dates: start: 20200630, end: 20200630
  2. HUMIRA [Suspect]
     Active Substance: ADALIMUMAB
     Dosage: DAY 22
     Route: 058
     Dates: start: 20200707
  3. HUMIRA [Suspect]
     Active Substance: ADALIMUMAB
     Dosage: DAY 22
     Route: 058

REACTIONS (9)
  - Skin irritation [Recovering/Resolving]
  - General physical condition abnormal [Not Recovered/Not Resolved]
  - Helplessness [Not Recovered/Not Resolved]
  - Pruritus [Recovering/Resolving]
  - Back pain [Recovering/Resolving]
  - Pain [Recovering/Resolving]
  - Transient ischaemic attack [Recovering/Resolving]
  - Self-consciousness [Not Recovered/Not Resolved]
  - COVID-19 [Recovering/Resolving]

NARRATIVE: CASE EVENT DATE: 2020
